FAERS Safety Report 15926510 (Version 2)
Quarter: 2019Q1

REPORT INFORMATION
  Report Type: Spontaneous
  Country: US (occurrence: US)
  Receive Date: 20190205
  Receipt Date: 20190219
  Transmission Date: 20190417
  Serious: No
  Sender: FDA-Public Use
  Company Number: US-ALLERGAN-1846369US

PATIENT
  Sex: Female

DRUGS (8)
  1. CARVIDOLOL [Concomitant]
     Dosage: UNK
     Route: 048
  2. VITAMIN D [Concomitant]
     Active Substance: CHOLECALCIFEROL
     Indication: SUPPLEMENTATION THERAPY
     Dosage: UNK
     Route: 048
  3. CARBAMAZEPINE. [Concomitant]
     Active Substance: CARBAMAZEPINE
     Indication: SEIZURE
     Dosage: UNK
     Route: 065
  4. BOTOX [Suspect]
     Active Substance: ONABOTULINUMTOXINA
     Indication: SALIVARY HYPERSECRETION
     Dosage: UNK, SINGLE
     Route: 030
  5. BOTOX [Suspect]
     Active Substance: ONABOTULINUMTOXINA
     Dosage: ACTUAL:12.5 UNITS EACH SIDE, SINGLE
     Route: 030
     Dates: start: 20180226, end: 20180226
  6. BOTOX [Suspect]
     Active Substance: ONABOTULINUMTOXINA
     Dosage: UNK, SINGLE
     Route: 030
  7. MULITVITAMIN [Concomitant]
     Indication: SUPPLEMENTATION THERAPY
     Dosage: UNK
     Route: 048
  8. OYSTER [Concomitant]
     Active Substance: OYSTER, UNSPECIFIED
     Dosage: UNK
     Route: 048

REACTIONS (24)
  - Irritability [Unknown]
  - Polydipsia [Unknown]
  - Sneezing [Not Recovered/Not Resolved]
  - Off label use [Unknown]
  - Dry mouth [Not Recovered/Not Resolved]
  - Loss of consciousness [Unknown]
  - Amnesia [Unknown]
  - Rhinorrhoea [Not Recovered/Not Resolved]
  - Coating in mouth [Not Recovered/Not Resolved]
  - Adverse drug reaction [Unknown]
  - Neck pain [Not Recovered/Not Resolved]
  - Dizziness [Not Recovered/Not Resolved]
  - Somnolence [Not Recovered/Not Resolved]
  - Pain [Not Recovered/Not Resolved]
  - Eye irritation [Not Recovered/Not Resolved]
  - Dysphagia [Not Recovered/Not Resolved]
  - Feeling abnormal [Not Recovered/Not Resolved]
  - Eye disorder [Not Recovered/Not Resolved]
  - Drug ineffective for unapproved indication [Unknown]
  - Tremor [Not Recovered/Not Resolved]
  - Mental impairment [Unknown]
  - Visual impairment [Not Recovered/Not Resolved]
  - Headache [Not Recovered/Not Resolved]
  - Malaise [Not Recovered/Not Resolved]

NARRATIVE: CASE EVENT DATE: 20181029
